FAERS Safety Report 6097490-8 (Version None)
Quarter: 2009Q1

REPORT INFORMATION
  Report Type: 
  Country: None (occurrence: None)
  Receive Date: 20090227
  Receipt Date: 20080807
  Transmission Date: 20090719
  Serious: No
  Sender: FDA-Public Use
  Company Number: A0741594A

PATIENT
  Age: 50 Year
  Sex: Female

DRUGS (4)
  1. IMITREX [Suspect]
     Indication: MIGRAINE
     Dosage: 1INJ TWICE PER DAY
     Route: 058
     Dates: start: 19940101
  2. IMITREX [Suspect]
     Dosage: 100MG VARIABLE DOSE
     Route: 048
     Dates: start: 19960101
  3. DURAGESIC-100 [Concomitant]
     Dates: start: 20060101
  4. MAGNESIUM SULFATE [Concomitant]
     Dates: start: 20080701, end: 20080701

REACTIONS (1)
  - DRUG INEFFECTIVE [None]
